FAERS Safety Report 18145756 (Version 1)
Quarter: 2020Q3

REPORT INFORMATION
  Report Type: Spontaneous
  Country: US (occurrence: US)
  Receive Date: 20200813
  Receipt Date: 20200813
  Transmission Date: 20201103
  Serious: No
  Sender: FDA-Public Use
  Company Number: US-MISSION PHARMACAL COMPANY-2088573

PATIENT
  Age: 31 Year
  Sex: Female

DRUGS (2)
  1. POTASSIUM CITRATE. [Suspect]
     Active Substance: POTASSIUM CITRATE
     Indication: CYSTINURIA
     Route: 065
  2. THIOLA EC [Concomitant]
     Active Substance: TIOPRONIN
     Route: 048

REACTIONS (1)
  - Nephrolithiasis [Unknown]
